FAERS Safety Report 5221485-7 (Version None)
Quarter: 2007Q1

REPORT INFORMATION
  Report Type: 
  Country: None (occurrence: None)
  Receive Date: 20070126
  Receipt Date: 20070111
  Transmission Date: 20070707
  Serious: Yes (Hospitalization)
  Sender: FDA-Public Use
  Company Number: US-AMGEN-STX205372

PATIENT
  Sex: Female

DRUGS (1)
  1. ENBREL [Suspect]
     Indication: RHEUMATOID ARTHRITIS
     Route: 058
     Dates: start: 19981201

REACTIONS (4)
  - INJECTION SITE BRUISING [None]
  - INJECTION SITE PAIN [None]
  - KNEE ARTHROPLASTY [None]
  - RHEUMATOID ARTHRITIS [None]
